APPROVED DRUG PRODUCT: DOXERCALCIFEROL
Active Ingredient: DOXERCALCIFEROL
Strength: 4MCG/2ML (2MCG/ML)
Dosage Form/Route: INJECTABLE;INJECTION
Application: A210452 | Product #001 | TE Code: AP
Applicant: GLAND PHARMA LTD
Approved: Sep 26, 2019 | RLD: No | RS: No | Type: RX